FAERS Safety Report 4386568-2 (Version None)
Quarter: 2004Q2

REPORT INFORMATION
  Report Type: 
  Country: None (occurrence: None)
  Receive Date: 20040623
  Receipt Date: 20040615
  Transmission Date: 20050107
  Serious: Yes (Life-Threatening, Hospitalization)
  Sender: FDA-Public Use
  Company Number: DE-2004-026541

PATIENT
  Age: 73 Year
  Sex: Male
  Weight: 90 kg

DRUGS (1)
  1. MAGNEVIST [Suspect]
     Indication: NUCLEAR MAGNETIC RESONANCE IMAGING
     Dosage: 18 ML, 1 DOSE, INTRAVENOUS
     Route: 042
     Dates: start: 20040513, end: 20040513

REACTIONS (10)
  - BLOOD PRESSURE IMMEASURABLE [None]
  - CIRCULATORY COLLAPSE [None]
  - COMA [None]
  - CONTRAST MEDIA REACTION [None]
  - EXANTHEM [None]
  - INJECTION SITE REACTION [None]
  - NAUSEA [None]
  - RESPIRATORY ARREST [None]
  - SHOCK [None]
  - VOMITING [None]
